FAERS Safety Report 8378071-X (Version None)
Quarter: 2012Q2

REPORT INFORMATION
  Report Type: 
  Country: None (occurrence: None)
  Receive Date: 20120522
  Receipt Date: 20120405
  Transmission Date: 20120825
  Serious: Yes (Other)
  Sender: FDA-Public Use
  Company Number: CA-ROCHE-1037613

PATIENT
  Sex: Female
  Weight: 59.02 kg

DRUGS (16)
  1. TRANDOLAPRIL [Concomitant]
  2. SPIRONOLACTONE [Concomitant]
  3. METFORMIN HCL [Concomitant]
     Route: 048
  4. PREDNISONE [Concomitant]
     Route: 048
  5. ESCITALOPRAM [Concomitant]
  6. TYLENOL [Concomitant]
     Dosage: DRUG REPORTED AS TYLENOL 500.
  7. ACTEMRA [Suspect]
     Indication: RHEUMATOID ARTHRITIS
     Route: 042
     Dates: start: 20120201, end: 20120328
  8. ADVAIR DISKUS 100/50 [Concomitant]
     Route: 055
  9. HYDROCORTISONE VALERATE [Concomitant]
  10. RABEPRAZOLE SODIUM [Concomitant]
     Route: 048
  11. ALENDRONATE SODIUM [Concomitant]
  12. OXYCODONE HCL [Concomitant]
  13. NASACORT [Concomitant]
  14. LORATADINE [Concomitant]
  15. WARFARIN SODIUM [Concomitant]
     Dosage: 2-2.5 MG
     Route: 048
  16. FUROSEMIDE [Concomitant]

REACTIONS (3)
  - RHEUMATOID ARTHRITIS [None]
  - PAIN [None]
  - DRUG INEFFECTIVE [None]
